FAERS Safety Report 23047170 (Version 3)
Quarter: 2024Q1

REPORT INFORMATION
  Report Type: Spontaneous
  Country: JP (occurrence: JP)
  Receive Date: 20231009
  Receipt Date: 20240301
  Transmission Date: 20240410
  Serious: Yes (Life-Threatening, Hospitalization, Other)
  Sender: FDA-Public Use
  Company Number: JP-MSD-M2023-42297

PATIENT
  Age: 88 Year
  Sex: Female
  Weight: 49 kg

DRUGS (2)
  1. CUBICIN [Suspect]
     Active Substance: DAPTOMYCIN
     Indication: Staphylococcal osteomyelitis
     Dosage: 300 MILLIGRAM, QD
     Route: 041
     Dates: start: 20230906, end: 20230927
  2. CELECOXIB [Concomitant]
     Active Substance: CELECOXIB
     Dosage: UNK
     Route: 065

REACTIONS (4)
  - Eosinophilic pneumonia [Recovering/Resolving]
  - Pleural effusion [Unknown]
  - Decreased appetite [Unknown]
  - Product use in unapproved indication [Unknown]

NARRATIVE: CASE EVENT DATE: 20230906
